FAERS Safety Report 21077458 (Version 1)
Quarter: 2022Q3

REPORT INFORMATION
  Report Type: Spontaneous
  Country: CN (occurrence: US)
  Receive Date: 20220713
  Receipt Date: 20220713
  Transmission Date: 20221027
  Serious: No
  Sender: FDA-Public Use
  Company Number: US-Blueprint Medicines Corporation-259

PATIENT
  Sex: Male

DRUGS (1)
  1. AYVAKIT [Suspect]
     Active Substance: AVAPRITINIB
     Indication: Systemic mastocytosis
     Route: 048
     Dates: start: 20220624

REACTIONS (6)
  - Nasopharyngitis [Recovering/Resolving]
  - Dysphonia [Unknown]
  - Nausea [Recovered/Resolved]
  - Diarrhoea [Unknown]
  - Constipation [Unknown]
  - Asthenia [Recovering/Resolving]
